FAERS Safety Report 20599035 (Version 2)
Quarter: 2022Q1

REPORT INFORMATION
  Report Type: Other
  Country: CA (occurrence: None)
  Receive Date: 20220315
  Receipt Date: 20220325
  Transmission Date: 20220424
  Serious: Yes (Hospitalization, Other)
  Sender: FDA-Public Use
  Company Number: CA-ROCHE-3043437

PATIENT
  Sex: Female

DRUGS (3)
  1. ACTEMRA [Suspect]
     Active Substance: TOCILIZUMAB
     Indication: Tumour necrosis factor receptor-associated periodic syndrome
     Route: 058
     Dates: start: 20211231
  2. PREDNISONE [Concomitant]
     Active Substance: PREDNISONE
  3. COLCHICINE [Concomitant]
     Active Substance: COLCHICINE

REACTIONS (3)
  - Staphylococcal infection [Unknown]
  - Cellulitis [Unknown]
  - Off label use [Unknown]
